FAERS Safety Report 21651908 (Version 1)
Quarter: 2022Q4

REPORT INFORMATION
  Report Type: Spontaneous
  Country: US (occurrence: US)
  Receive Date: 20221128
  Receipt Date: 20221128
  Transmission Date: 20230113
  Serious: Yes (Other)
  Sender: FDA-Public Use
  Company Number: US-MYLANLABS-2022M1132120

PATIENT
  Age: 8 Decade
  Sex: Female

DRUGS (4)
  1. HYDROCORTISONE [Suspect]
     Active Substance: HYDROCORTISONE
     Indication: Rash
     Dosage: UNK
     Route: 065
  2. TRIAMCINOLONE [Suspect]
     Active Substance: TRIAMCINOLONE
     Indication: Rash
     Dosage: TRIAMCINOLONE 0.1% CREAM TWICE DAILY..
     Route: 065
  3. PEMBROLIZUMAB [Interacting]
     Active Substance: PEMBROLIZUMAB
     Indication: Non-small cell lung cancer
     Dosage: 200 MILLIGRAM, CYCLE (EVERY 21 DAYS) (INFUSION)
     Route: 065
     Dates: start: 2020
  4. PEMETREXED [Concomitant]
     Active Substance: PEMETREXED
     Indication: Non-small cell lung cancer
     Dosage: 755 MILLIGRAM, CYCLE (EVERY 21 DAYS) INFUSION
     Route: 065
     Dates: start: 2020

REACTIONS (1)
  - Drug ineffective [Unknown]
